FAERS Safety Report 4650193-6 (Version None)
Quarter: 2005Q2

REPORT INFORMATION
  Report Type: 
  Country: None (occurrence: None)
  Receive Date: 20050428
  Receipt Date: 20050418
  Transmission Date: 20051028
  Serious: Yes (Hospitalization)
  Sender: FDA-Public Use
  Company Number: 2005AP02337

PATIENT
  Age: 90 Year
  Sex: Female

DRUGS (5)
  1. TENORMIN [Suspect]
     Indication: ESSENTIAL HYPERTENSION
     Dosage: 25 MG DAILY PO
     Route: 048
  2. ENALAPRIL MALEATE [Suspect]
     Indication: ESSENTIAL HYPERTENSION
     Dosage: 20 MG DAILY
     Dates: end: 19931213
  3. PIROXICAM [Suspect]
     Indication: ILL-DEFINED DISORDER
     Dosage: 20 MG DAILY PO
     Route: 048
     Dates: end: 19931213
  4. SPIRONOLACTONE [Suspect]
     Indication: ESSENTIAL HYPERTENSION
     Dosage: 25 MG DAILY PO
     Route: 048
     Dates: end: 19931208
  5. ALDALIX [Suspect]
     Indication: ESSENTIAL HYPERTENSION
     Dosage: 40 MG DAILY PO
     Route: 048

REACTIONS (4)
  - DRUG INEFFECTIVE [None]
  - HYPERKALAEMIA [None]
  - HYPERTENSION [None]
  - SYNCOPE [None]
